FAERS Safety Report 8776186 (Version 3)
Quarter: 2012Q4

REPORT INFORMATION
  Report Type: 
  Country: US (occurrence: US)
  Receive Date: 20120910
  Receipt Date: 20121023
  Transmission Date: 20130627
  Serious: Yes (Other)
  Sender: FDA-Public Use
  Company Number: US-009507513-1207USA010103

PATIENT
  Sex: Female

DRUGS (5)
  1. PEG-INTRON [Suspect]
     Indication: HEPATITIS C
     Dosage: 150 Microgram/ 0.5 milliliter, qw
     Dates: start: 20120708, end: 20120708
  2. PEG-INTRON [Suspect]
     Dosage: 150 Microgram/ 0.5 milliliter, qw
     Dates: start: 20120715, end: 20120715
  3. PEG-INTRON [Suspect]
     Dosage: UNK
     Dates: start: 20120819
  4. REBETOL [Suspect]
     Indication: HEPATITIS C
     Dosage: UNK
     Route: 048
     Dates: start: 20120708
  5. REBETOL [Suspect]
     Dosage: UNK
     Dates: start: 20120819

REACTIONS (8)
  - Abortion spontaneous [Recovered/Resolved]
  - Maternal exposure during pregnancy [Recovered/Resolved]
  - Pain [Unknown]
  - Pain [Unknown]
  - Insomnia [Recovering/Resolving]
  - Pain [Unknown]
  - Gingival bleeding [Unknown]
  - Haemoglobin decreased [Unknown]
